FAERS Safety Report 10518608 (Version 2)
Quarter: 2014Q4

REPORT INFORMATION
  Report Type: Spontaneous
  Country: DE (occurrence: DE)
  Receive Date: 20141015
  Receipt Date: 20141015
  Transmission Date: 20150528
  Serious: Yes (Other)
  Sender: FDA-Public Use
  Company Number: DE-LEO PHARMA-225043

PATIENT
  Age: 72 Year
  Sex: Male

DRUGS (2)
  1. PICATO [Suspect]
     Active Substance: INGENOL MEBUTATE
     Indication: ACTINIC KERATOSIS
     Dates: start: 201305
  2. PICATO [Suspect]
     Active Substance: INGENOL MEBUTATE
     Dates: start: 20130909

REACTIONS (3)
  - Inappropriate schedule of drug administration [None]
  - Superinfection bacterial [Unknown]
  - Application site scab [Unknown]
